FAERS Safety Report 5002037-0 (Version None)
Quarter: 2006Q2

REPORT INFORMATION
  Report Type: 
  Country: None (occurrence: None)
  Receive Date: 20060515
  Receipt Date: 20060410
  Transmission Date: 20061013
  Serious: Yes (Other)
  Sender: FDA-Public Use
  Company Number: US-MERCK-0604USA02047

PATIENT
  Age: 37 Year
  Sex: Female
  Weight: 73 kg

DRUGS (2)
  1. VIOXX [Suspect]
     Indication: BACK PAIN
     Route: 048
     Dates: start: 20030501, end: 20041001
  2. VIOXX [Suspect]
     Route: 048

REACTIONS (5)
  - ADVERSE EVENT [None]
  - AMNESIA [None]
  - APHASIA [None]
  - BALANCE DISORDER [None]
  - MYOCARDIAL INFARCTION [None]
